FAERS Safety Report 6482843 (Version 23)
Quarter: 2014Q1

REPORT INFORMATION
  Report Type: Spontaneous
  Country: US (occurrence: US)
  Receive Date: 20071207
  Receipt Date: 20140113
  Transmission Date: 20141002
  Serious: Yes (Death, Hospitalization, Other)
  Sender: FDA-Public Use
  Company Number: PHEH2007US15453

PATIENT
  Age: 61 Year
  Sex: Male
  Weight: 61.68 kg

DRUGS (47)
  1. ZOMETA [Suspect]
     Indication: PLASMA CELL MYELOMA
     Dates: start: 2004
  2. ZOMETA [Suspect]
     Dosage: 3.3 MG, QMO
     Route: 041
     Dates: start: 20050419
  3. ZOMETA [Suspect]
     Dosage: 3.5 MG
     Route: 042
     Dates: start: 20060411
  4. ZOMETA [Suspect]
     Dosage: 4 MG
     Route: 042
     Dates: start: 20060504
  5. ZANTAC [Concomitant]
  6. DARVOCET-N [Concomitant]
  7. LISINOPRIL [Concomitant]
  8. NIFEDIPINE [Concomitant]
  9. NOVOLIN [Concomitant]
  10. NOVOLOG [Concomitant]
  11. ENDOCET [Concomitant]
     Indication: PAIN
  12. THALIDOMIDE [Concomitant]
     Dates: end: 200601
  13. DECADRON [Concomitant]
     Dates: start: 200406, end: 200607
  14. ACYCLOVIR [Concomitant]
     Dosage: 400 MG, BID
     Dates: end: 20051129
  15. MORPHINE SULFATE [Concomitant]
     Indication: PAIN
     Dosage: 10 MG,
     Dates: start: 20050126
  16. FLUCONAZOLE [Concomitant]
     Dosage: 400 MG,
  17. MS CONTIN [Concomitant]
     Dosage: 30 MG, BID
     Route: 048
  18. MSIR [Concomitant]
     Dosage: 15 MG, PRN
  19. AVELOX [Concomitant]
  20. CEFEPIME [Concomitant]
     Dosage: 2 G,
  21. TRIMETOPRIM-SULFA ^GEA^ [Concomitant]
     Dates: start: 20060726, end: 20060826
  22. CYPROHEPTADINE [Concomitant]
     Dosage: 4 MG,
     Dates: start: 20050822, end: 20060822
  23. CLINDAMYCIN HYDROCHLORIDE [Concomitant]
     Dosage: 150 MG,
     Route: 048
  24. ARANESP [Concomitant]
     Dosage: 40 UG/ML,
     Route: 058
  25. NAPROXEN [Concomitant]
     Dosage: 375 MG,
  26. WARFARIN [Concomitant]
     Dosage: 7.5 MG,
  27. MELPHALAN [Concomitant]
     Dosage: 200 MG,
     Dates: start: 20050119
  28. MESNA [Concomitant]
     Dosage: 680 MG, UNK
     Route: 042
     Dates: start: 20041228
  29. NEUPOGEN [Concomitant]
     Dosage: 300 UG, UNK
     Dates: start: 2003, end: 20050112
  30. CYCLOPHOSPHAMIDE [Concomitant]
     Dosage: 6800 MG, UNK
     Route: 042
  31. PERCOCET [Concomitant]
     Dates: start: 200511
  32. BACTRIM [Concomitant]
     Dates: start: 2005
  33. DEXAMETHASONE [Concomitant]
  34. OXYCODONE [Concomitant]
  35. FUROSEMIDE [Concomitant]
  36. ZOLPIDEM [Concomitant]
  37. ACETAMINOPHEN [Concomitant]
  38. CHLORHEXIDINE [Concomitant]
  39. FILGRASTIM [Concomitant]
  40. PEPCID [Concomitant]
  41. LOPERAMIDE [Concomitant]
  42. LEVAQUIN [Concomitant]
  43. MECLIZINE [Concomitant]
  44. SIMVASTATIN [Concomitant]
  45. RANITIDINE [Concomitant]
  46. AMLODIPINE [Concomitant]
  47. REVLIMID [Concomitant]

REACTIONS (144)
  - Blood pressure immeasurable [Fatal]
  - Pulse absent [Fatal]
  - Plasma cell myeloma recurrent [Unknown]
  - Mucosal inflammation [Unknown]
  - Otitis media [Unknown]
  - Neuropathy peripheral [Unknown]
  - Pain [Unknown]
  - Spinal osteoarthritis [Unknown]
  - Intervertebral disc protrusion [Unknown]
  - Bone pain [Unknown]
  - Thrombophlebitis [Unknown]
  - Neutropenia [Unknown]
  - Osteonecrosis of jaw [Unknown]
  - Injury [Unknown]
  - Pain in jaw [Unknown]
  - Anxiety [Unknown]
  - Anhedonia [Unknown]
  - Gingival pain [Unknown]
  - Salivary gland enlargement [Unknown]
  - Bone disorder [Unknown]
  - Jaw disorder [Unknown]
  - Abscess jaw [Unknown]
  - Bone swelling [Unknown]
  - Tooth disorder [Recovered/Resolved]
  - Mastication disorder [Recovered/Resolved]
  - Cellulitis [Unknown]
  - Weight decreased [Unknown]
  - Renal failure acute [Unknown]
  - Hyperkalaemia [Unknown]
  - Renal tubular acidosis [Unknown]
  - Large intestine polyp [Unknown]
  - Bone lesion [Unknown]
  - Extraskeletal ossification [Unknown]
  - Rectal haemorrhage [Unknown]
  - Hypotension [Unknown]
  - Acidosis hyperchloraemic [Unknown]
  - Osteosclerosis [Unknown]
  - Osteomyelitis [Unknown]
  - Spinal cord injury [Unknown]
  - Radiculitis [Unknown]
  - Spondylolisthesis [Unknown]
  - Hiatus hernia [Unknown]
  - Stomatitis [Unknown]
  - Basal cell carcinoma [Unknown]
  - Squamous cell carcinoma of skin [Unknown]
  - Actinic keratosis [Unknown]
  - Ear pain [Unknown]
  - Otorrhoea [Unknown]
  - Otitis externa [Unknown]
  - Hyperlipidaemia [Unknown]
  - Deep vein thrombosis [Unknown]
  - Mastoiditis [Unknown]
  - Nephrolithiasis [Unknown]
  - Squamous cell carcinoma of lung [Unknown]
  - Metastases to liver [Unknown]
  - Chronic obstructive pulmonary disease [Unknown]
  - Pneumothorax [Unknown]
  - Pneumonia [Unknown]
  - Gastritis [Unknown]
  - Dermatitis [Unknown]
  - Dyspnoea [Unknown]
  - Chest pain [Unknown]
  - Lung infiltration [Recovered/Resolved]
  - Diabetic foot [Unknown]
  - Sensory loss [Unknown]
  - Hyperkeratosis [Unknown]
  - Bone fragmentation [Unknown]
  - Atrial fibrillation [Unknown]
  - Metastases to neck [Unknown]
  - Fall [Unknown]
  - Dizziness [Unknown]
  - Wound [Unknown]
  - Confusional state [Unknown]
  - Fatigue [Unknown]
  - Dysphagia [Unknown]
  - Contusion [Unknown]
  - Skin ulcer [Unknown]
  - Impaired healing [Unknown]
  - Dysphonia [Unknown]
  - Local swelling [Unknown]
  - Constipation [Unknown]
  - Bone loss [Unknown]
  - Oedema [Unknown]
  - Dental caries [Unknown]
  - Periodontitis [Unknown]
  - Tooth fracture [Unknown]
  - Gait disturbance [Unknown]
  - Headache [Unknown]
  - Ear infection [Unknown]
  - Respiratory failure [Unknown]
  - Hypoxia [Unknown]
  - Agranulocytosis [Unknown]
  - Sinus congestion [Unknown]
  - Urinary tract infection enterococcal [Unknown]
  - Acute myocardial infarction [Unknown]
  - Pancytopenia [Unknown]
  - Hyperglycaemia [Unknown]
  - Wheezing [Unknown]
  - Leukopenia [Unknown]
  - Bronchitis [Unknown]
  - Dehydration [Unknown]
  - Dyspnoea exertional [Unknown]
  - Cardiac failure congestive [Unknown]
  - Diaphragmatic hernia [Unknown]
  - Thyroid neoplasm [Unknown]
  - Arteriosclerosis coronary artery [Unknown]
  - Pulmonary fibrosis [Unknown]
  - Atelectasis [Unknown]
  - Colon adenoma [Unknown]
  - Abdominal distension [Unknown]
  - Rib fracture [Unknown]
  - Productive cough [Unknown]
  - Haematuria [Unknown]
  - Haemorrhoids [Unknown]
  - Urinary tract obstruction [Unknown]
  - Upper-airway cough syndrome [Unknown]
  - Rales [Unknown]
  - Emphysema [Unknown]
  - Mitral valve calcification [Unknown]
  - Tricuspid valve incompetence [Unknown]
  - Oesophageal carcinoma [Unknown]
  - Second primary malignancy [Unknown]
  - Hyperhidrosis [Unknown]
  - Nephritis [Unknown]
  - Acute coronary syndrome [Unknown]
  - Rheumatoid arthritis [Unknown]
  - Pericarditis [Unknown]
  - Upper gastrointestinal haemorrhage [Unknown]
  - Diabetic nephropathy [Unknown]
  - Melaena [Unknown]
  - Nausea [Recovered/Resolved]
  - Vomiting [Recovered/Resolved]
  - Hypoaesthesia [Unknown]
  - Ecchymosis [Unknown]
  - Pyrexia [Unknown]
  - Cough [Unknown]
  - Malnutrition [Unknown]
  - Cachexia [Unknown]
  - Tachycardia [Unknown]
  - Asthenia [Unknown]
  - Muscular weakness [Unknown]
  - Abdominal pain [Unknown]
  - Rhinorrhoea [Unknown]
  - Oropharyngeal pain [Unknown]
